FAERS Safety Report 5244078-4 (Version None)
Quarter: 2007Q1

REPORT INFORMATION
  Report Type: 
  Country: None (occurrence: None)
  Receive Date: 20070209
  Receipt Date: 20070131
  Transmission Date: 20070707
  Serious: Yes (Other)
  Sender: FDA-Public Use
  Company Number: THYM-11202

PATIENT
  Age: 50 Year
  Sex: Female

DRUGS (9)
  1. THYMOGLOBULIN [Suspect]
     Indication: RENAL TRANSPLANT
     Dosage: 115 MG QD; IV
     Route: 042
     Dates: start: 20070106, end: 20070107
  2. THYMOGLOBULIN [Suspect]
     Indication: RENAL TRANSPLANT
     Dosage: 100 MG QD; IV
     Route: 042
     Dates: start: 20070108, end: 20070108
  3. PRENISONE [Concomitant]
  4. CELLCEPT [Concomitant]
  5. TACROLIMUS [Concomitant]
  6. ZENAPAX [Concomitant]
  7. BACTRIM [Concomitant]
  8. VALTREX [Concomitant]
  9. HEPARIN [Concomitant]

REACTIONS (4)
  - DYSPNOEA [None]
  - LUNG DISORDER [None]
  - PULMONARY OEDEMA [None]
  - WEIGHT INCREASED [None]
